FAERS Safety Report 24711845 (Version 1)
Quarter: 2024Q4

REPORT INFORMATION
  Report Type: Spontaneous
  Country: US (occurrence: None)
  Receive Date: 20241206
  Receipt Date: 20241206
  Transmission Date: 20250115
  Serious: No
  Sender: Public
  Company Number: None

PATIENT
  Age: 82 Year
  Sex: Female
  Weight: 48.6 kg

DRUGS (5)
  1. OLAY COMPLETE ALL DAY MOISTURE SENSITIVE WITH BROAD SPECTRUM SPF 15 [Suspect]
     Active Substance: OCTINOXATE\ZINC OXIDE
     Indication: Dry skin prophylaxis
     Dosage: OTHER STRENGTH : ABOUT 2 ML?
     Route: 061
     Dates: start: 20241120, end: 20241124
  2. OLAY COMPLETE ALL DAY MOISTURE SENSITIVE WITH BROAD SPECTRUM SPF 15 [Suspect]
     Active Substance: OCTINOXATE\ZINC OXIDE
     Indication: Prophylaxis against solar radiation
  3. SIMVASTATIN [Concomitant]
     Active Substance: SIMVASTATIN
  4. CALCIUM [Concomitant]
     Active Substance: CALCIUM
  5. GLUCOSAMINE/CHONDROTINE [Concomitant]

REACTIONS (4)
  - Nasal disorder [None]
  - Eye disorder [None]
  - Lacrimation increased [None]
  - Blindness transient [None]

NARRATIVE: CASE EVENT DATE: 20241120
